FAERS Safety Report 4985720-2 (Version None)
Quarter: 2006Q2

REPORT INFORMATION
  Report Type: 
  Country: None (occurrence: None)
  Receive Date: 20060428
  Receipt Date: 20050705
  Transmission Date: 20061013
  Serious: No
  Sender: FDA-Public Use
  Company Number: US-GLAXOSMITHKLINE-A0564953A

PATIENT
  Sex: Female

DRUGS (5)
  1. ZOFRAN [Suspect]
     Indication: NAUSEA
     Dosage: 8MG TWICE PER DAY
     Route: 048
     Dates: start: 19990101
  2. THYROID TAB [Concomitant]
  3. WATER PILL [Concomitant]
     Route: 065
  4. ROBAXIN [Concomitant]
  5. PHENERGAN HCL [Concomitant]

REACTIONS (1)
  - WEIGHT DECREASED [None]
